FAERS Safety Report 7388756-X (Version None)
Quarter: 2011Q2

REPORT INFORMATION
  Report Type: 
  Country: None (occurrence: None)
  Receive Date: 20110401
  Receipt Date: 20110323
  Transmission Date: 20111010
  Serious: Yes (Hospitalization)
  Sender: FDA-Public Use
  Company Number: US-JNJFOC-20110310660

PATIENT
  Age: 12 Year
  Sex: Female
  Weight: 48.99 kg

DRUGS (2)
  1. ORTHO EVRA [Suspect]
     Indication: DYSMENORRHOEA
     Route: 062
  2. ZYRTEC [Concomitant]
     Indication: MULTIPLE ALLERGIES
     Route: 048

REACTIONS (14)
  - GASTRIC ULCER [None]
  - ADVERSE EVENT [None]
  - EAR PAIN [None]
  - RASH [None]
  - PRODUCT QUALITY ISSUE [None]
  - GASTRITIS [None]
  - OFF LABEL USE [None]
  - FALL [None]
  - JOINT INJURY [None]
  - HYPERSENSITIVITY [None]
  - WRONG TECHNIQUE IN DRUG USAGE PROCESS [None]
  - OTORRHOEA [None]
  - DENTAL OPERATION [None]
  - ASTHENIA [None]
